FAERS Safety Report 8934191 (Version 1)
Quarter: 2012Q4

REPORT INFORMATION
  Report Type: 
  Country: AU (occurrence: AU)
  Receive Date: 20121129
  Receipt Date: 20121129
  Transmission Date: 20130627
  Serious: Yes (Life-Threatening, Other)
  Sender: FDA-Public Use
  Company Number: AU-JHP PHARMACEUTICALS, LLC-JHP201200544

PATIENT

DRUGS (1)
  1. KETALAR [Suspect]
     Indication: PAIN
     Route: 058

REACTIONS (2)
  - Cardiac arrest [Unknown]
  - Off label use [Recovered/Resolved]
